FAERS Safety Report 20996475 (Version 1)
Quarter: 2022Q2

REPORT INFORMATION
  Report Type: Spontaneous
  Country: FR (occurrence: FR)
  Receive Date: 20220623
  Receipt Date: 20220623
  Transmission Date: 20220721
  Serious: Yes (Hospitalization, Other)
  Sender: FDA-Public Use
  Company Number: FR-Zydus-029378

PATIENT

DRUGS (5)
  1. TRAMADOL [Suspect]
     Active Substance: TRAMADOL
     Indication: Product used for unknown indication
     Dosage: MORE THAN 2 STICKER TRAMADOL
     Route: 048
  2. INSULIN ASPART [Suspect]
     Active Substance: INSULIN ASPART
     Indication: Product used for unknown indication
     Dosage: 5 DOSAGE FORM,5 PEN INSULIN ASPART
     Route: 048
  3. AMLODIPINE\PERINDOPRIL [Suspect]
     Active Substance: AMLODIPINE\PERINDOPRIL
     Indication: Product used for unknown indication
     Dosage: MORE THAN 2 STICKER PERINDOPRIL ARGININE/ AMLODIPINE
     Route: 048
  4. DABIGATRAN [Suspect]
     Active Substance: DABIGATRAN
     Indication: Anticoagulant therapy
     Dosage: 3000 TO 4500 MG
     Route: 048
  5. DABIGATRAN [Suspect]
     Active Substance: DABIGATRAN
     Indication: Atrial fibrillation

REACTIONS (4)
  - Poisoning deliberate [Unknown]
  - Intentional overdose [Unknown]
  - Hypoglycaemia [Unknown]
  - Hypotension [Unknown]
